FAERS Safety Report 5379518-3 (Version None)
Quarter: 2007Q3

REPORT INFORMATION
  Report Type: 
  Country: None (occurrence: None)
  Receive Date: 20070703
  Receipt Date: 20070621
  Transmission Date: 20080115
  Serious: Yes (Hospitalization)
  Sender: FDA-Public Use
  Company Number: 2007BI011656

PATIENT
  Age: 32 Year
  Sex: Female

DRUGS (2)
  1. NATALIZUMAB [Suspect]
     Indication: MULTIPLE SCLEROSIS
     Dosage: 300 MG; QM; IV
     Route: 042
     Dates: start: 20050111, end: 20050201
  2. NATALIZUMAB [Suspect]
     Indication: MULTIPLE SCLEROSIS
     Dosage: 300 MG; QM; IV
     Route: 042
     Dates: start: 20061206

REACTIONS (6)
  - DYSFUNCTIONAL UTERINE BLEEDING [None]
  - EAR INFECTION [None]
  - INFECTION [None]
  - PELVIC INFECTION [None]
  - POST PROCEDURAL HAEMORRHAGE [None]
  - POST PROCEDURAL INFECTION [None]
